FAERS Safety Report 9745276 (Version 1)
Quarter: 2013Q4

REPORT INFORMATION
  Report Type: Report from Study
  Country: JP (occurrence: JP)
  Receive Date: 20131211
  Receipt Date: 20131211
  Transmission Date: 20140711
  Serious: Yes (Hospitalization)
  Sender: FDA-Public Use
  Company Number: JP-JNJFOC-20131200366

PATIENT
  Age: 75 Year
  Sex: Male
  Weight: 58 kg

DRUGS (19)
  1. STELARA [Suspect]
     Indication: PSORIASIS
     Route: 058
     Dates: start: 20130415, end: 20130415
  2. STELARA [Suspect]
     Indication: PSORIASIS
     Route: 058
     Dates: start: 20130121, end: 20130121
  3. STELARA [Suspect]
     Indication: PSORIASIS
     Route: 058
     Dates: start: 20121112, end: 20121112
  4. STELARA [Suspect]
     Indication: PSORIASIS
     Route: 058
     Dates: start: 20110621, end: 20110621
  5. STELARA [Suspect]
     Indication: PSORIASIS
     Route: 058
     Dates: start: 20110719, end: 20110719
  6. STELARA [Suspect]
     Indication: PSORIASIS
     Route: 058
     Dates: start: 20111011, end: 20111011
  7. STELARA [Suspect]
     Indication: PSORIASIS
     Route: 058
     Dates: start: 20111227, end: 20111227
  8. STELARA [Suspect]
     Indication: PSORIASIS
     Route: 058
     Dates: start: 20120314, end: 20120314
  9. STELARA [Suspect]
     Indication: PSORIASIS
     Route: 058
     Dates: start: 20120605, end: 20120605
  10. STELARA [Suspect]
     Indication: PSORIASIS
     Route: 058
     Dates: start: 20130708
  11. STELARA [Suspect]
     Indication: PSORIASIS
     Route: 058
     Dates: start: 20120820, end: 20120820
  12. FERRUM [Concomitant]
     Indication: IRON DEFICIENCY ANAEMIA
     Route: 048
  13. METHYCOBAL [Concomitant]
     Indication: NEUROPATHY PERIPHERAL
     Route: 048
  14. MUCOSTA [Concomitant]
     Route: 048
  15. GASMOTIN [Concomitant]
     Route: 048
  16. TAKEPRON [Concomitant]
     Route: 048
  17. HYALEIN [Concomitant]
     Route: 047
  18. DOVONEX [Concomitant]
     Route: 061
     Dates: end: 20110719
  19. INFLUENZA HA VACCINE [Concomitant]
     Indication: PROPHYLAXIS
     Route: 058
     Dates: start: 20111108, end: 20111108

REACTIONS (1)
  - Ureteric cancer [Not Recovered/Not Resolved]
